FAERS Safety Report 10736837 (Version 1)
Quarter: 2015Q1

REPORT INFORMATION
  Report Type: Spontaneous
  Country: US (occurrence: None)
  Receive Date: 20150123
  Receipt Date: 20150123
  Transmission Date: 20150721
  Serious: Yes (Hospitalization)
  Sender: FDA-Public Use
  Company Number: None

PATIENT
  Age: 69 Year
  Sex: Female
  Weight: 77.1 kg

DRUGS (5)
  1. METHOTREXATE [Suspect]
     Active Substance: METHOTREXATE
     Dates: end: 20140530
  2. CYTARABINE. [Suspect]
     Active Substance: CYTARABINE
     Dates: end: 20141014
  3. RITUXIMAB (MOAB C2B8 ANTI CD20, CHIMERIC) [Suspect]
     Active Substance: RITUXIMAB
     Dates: end: 20140529
  4. PROCARBAZINE [Suspect]
     Active Substance: PROCARBAZINE
     Dates: end: 20140604
  5. VINCRISTINE SULFATE. [Suspect]
     Active Substance: VINCRISTINE SULFATE
     Dates: end: 20140404

REACTIONS (7)
  - Confusional state [None]
  - Haemoglobin decreased [None]
  - Sinus tachycardia [None]
  - White blood cells urine positive [None]
  - White blood cell count increased [None]
  - Haematocrit decreased [None]
  - Encephalomalacia [None]

NARRATIVE: CASE EVENT DATE: 20150113
